FAERS Safety Report 10402131 (Version 1)
Quarter: 2014Q3

REPORT INFORMATION
  Report Type: Spontaneous
  Country: US (occurrence: US)
  Receive Date: 20140822
  Receipt Date: 20140822
  Transmission Date: 20150326
  Serious: No
  Sender: FDA-Public Use
  Company Number: US-ELI_LILLY_AND_COMPANY-US201407010282

PATIENT
  Age: 38 Year
  Sex: Female

DRUGS (4)
  1. HUMULIN N [Suspect]
     Active Substance: INSULIN HUMAN
     Dosage: 16 U, EACH EVENING
     Route: 065
     Dates: start: 20140707
  2. HUMULIN N [Suspect]
     Active Substance: INSULIN HUMAN
     Indication: GESTATIONAL DIABETES
     Dosage: 30 U, EACH MORNING
     Route: 065
     Dates: start: 20140707
  3. HUMALOG [Suspect]
     Active Substance: INSULIN LISPRO
     Indication: GESTATIONAL DIABETES
     Dosage: 50 U, TID
     Route: 065
     Dates: start: 20140707
  4. PRENATAL VITAMINS                  /01549301/ [Concomitant]
     Active Substance: VITAMINS

REACTIONS (2)
  - Blood glucose increased [Unknown]
  - Maternal exposure during pregnancy [Not Recovered/Not Resolved]

NARRATIVE: CASE EVENT DATE: 20140707
